FAERS Safety Report 6722820-0 (Version None)
Quarter: 2010Q2

REPORT INFORMATION
  Report Type: 
  Country: None (occurrence: None)
  Receive Date: 20100512
  Receipt Date: 20100512
  Transmission Date: 20101027
  Serious: Yes (Hospitalization)
  Sender: FDA-Public Use
  Company Number: None

PATIENT
  Sex: Female
  Weight: 59.55 kg

DRUGS (2)
  1. CISPLATIN [Suspect]
     Dosage: 81 MG
     Dates: end: 20100421
  2. PACLITAXEL [Suspect]
     Dosage: 284 MG
     Dates: end: 20100421

REACTIONS (8)
  - ALANINE AMINOTRANSFERASE INCREASED [None]
  - ASPARTATE AMINOTRANSFERASE INCREASED [None]
  - BLOOD CALCIUM DECREASED [None]
  - BLOOD SODIUM DECREASED [None]
  - ESCHERICHIA URINARY TRACT INFECTION [None]
  - HAEMOGLOBIN DECREASED [None]
  - HYDRONEPHROSIS [None]
  - PYELONEPHRITIS [None]
